FAERS Safety Report 7562070-1 (Version None)
Quarter: 2011Q2

REPORT INFORMATION
  Report Type: 
  Country: None (occurrence: None)
  Receive Date: 20110622
  Receipt Date: 20090610
  Transmission Date: 20111010
  Serious: Yes (Death)
  Sender: FDA-Public Use
  Company Number: PHHY2009DE68649

PATIENT
  Sex: Female
  Weight: 44 kg

DRUGS (8)
  1. METAMIZOLE SODIUM [Concomitant]
  2. OCTREOTIDE HEXAL [Concomitant]
  3. FENTANYL-100 [Concomitant]
  4. GLIMEPIRIDE [Concomitant]
     Dosage: 2 MG, UNK
  5. ISKIMIL [Concomitant]
  6. CALCIMAGON [Concomitant]
  7. SANDOSTATIN LAR [Suspect]
     Indication: NEUROENDOCRINE TUMOUR
     Dosage: 20 MG, UNK
     Route: 030
  8. SANDOSTATIN LAR [Suspect]
     Dosage: 30 MG, UNK
     Route: 030

REACTIONS (1)
  - DEATH [None]
